FAERS Safety Report 9011462 (Version 3)
Quarter: 2013Q2

REPORT INFORMATION
  Report Type: Spontaneous
  Country: US (occurrence: US)
  Receive Date: 20130108
  Receipt Date: 20130617
  Transmission Date: 20140414
  Serious: Yes (Other)
  Sender: FDA-Public Use
  Company Number: US-BAYER-2013-002198

PATIENT
  Age: 29 Year
  Sex: Female
  Weight: 68.03 kg

DRUGS (1)
  1. MIRENA [Suspect]
     Indication: CONTRACEPTION
     Dosage: 20 MCG/24HR, CONT
     Route: 015
     Dates: start: 20090903, end: 201207

REACTIONS (4)
  - Uterine perforation [None]
  - Device dislocation [None]
  - Pregnancy with contraceptive device [None]
  - Drug ineffective [None]
